FAERS Safety Report 25328805 (Version 2)
Quarter: 2025Q2

REPORT INFORMATION
  Report Type: Spontaneous
  Country: US (occurrence: US)
  Receive Date: 20250519
  Receipt Date: 20250522
  Transmission Date: 20250717
  Serious: No
  Sender: Haleon PLC
  Company Number: US-HALEON-2242669

PATIENT
  Age: 66 Year
  Sex: Male

DRUGS (2)
  1. ABREVA [Suspect]
     Active Substance: DOCOSANOL
     Indication: Oral herpes
  2. ABREVA [Suspect]
     Active Substance: DOCOSANOL
     Dates: start: 20250507

REACTIONS (3)
  - Drug effect less than expected [Unknown]
  - Inappropriate schedule of product administration [Unknown]
  - Product physical consistency issue [Unknown]
